FAERS Safety Report 6810903-6 (Version None)
Quarter: 2010Q2

REPORT INFORMATION
  Report Type: 
  Country: None (occurrence: None)
  Receive Date: 20100630
  Receipt Date: 20081103
  Transmission Date: 20101027
  Serious: No
  Sender: FDA-Public Use
  Company Number: US-PFIZER INC-2008071970

PATIENT
  Sex: Female

DRUGS (6)
  1. ESTRING [Suspect]
  2. PANTOPRAZOLE [Concomitant]
  3. ALPRAZOLAM [Concomitant]
  4. ETODOLAC [Concomitant]
  5. ATENOLOL [Concomitant]
  6. ALL OTHER THERAPEUTIC PRODUCTS [Concomitant]
     Dates: start: 20080201

REACTIONS (1)
  - LABORATORY TEST ABNORMAL [None]
